FAERS Safety Report 21520043 (Version 1)
Quarter: 2022Q4

REPORT INFORMATION
  Report Type: Spontaneous
  Country: NO (occurrence: NO)
  Receive Date: 20221028
  Receipt Date: 20221028
  Transmission Date: 20230112
  Serious: Yes (Other)
  Sender: FDA-Public Use
  Company Number: None

PATIENT
  Age: 26 Year
  Sex: Female

DRUGS (1)
  1. CLINDAMYCIN PHOSPHATE [Suspect]
     Active Substance: CLINDAMYCIN PHOSPHATE
     Indication: Bacterial vaginosis
     Dosage: 100 MG, 1X/DAY
     Dates: start: 20221004, end: 20221006

REACTIONS (2)
  - Maternal exposure during pregnancy [Not Recovered/Not Resolved]
  - Haemorrhage in pregnancy [Not Recovered/Not Resolved]

NARRATIVE: CASE EVENT DATE: 20221004
